FAERS Safety Report 8277815-5 (Version None)
Quarter: 2012Q1

REPORT INFORMATION
  Report Type: 
  Country: None (occurrence: None)
  Receive Date: 20120312
  Receipt Date: 20120209
  Transmission Date: 20120608
  Serious: No
  Sender: FDA-Public Use
  Company Number: 2012SP007643

PATIENT
  Age: 20 Year
  Sex: Male

DRUGS (2)
  1. SAPHRIS [Suspect]
     Indication: PRODUCT USED FOR UNKNOWN INDICATION
     Dosage: 10;5 MG, BID
     Dates: start: 20120101
  2. SAPHRIS [Suspect]
     Indication: PRODUCT USED FOR UNKNOWN INDICATION
     Dosage: 10;5 MG, BID
     Dates: start: 20120101

REACTIONS (2)
  - AGITATION [None]
  - INSOMNIA [None]
